FAERS Safety Report 9132995 (Version 1)
Quarter: 2013Q1

REPORT INFORMATION
  Report Type: Spontaneous
  Country: US (occurrence: US)
  Receive Date: 20130301
  Receipt Date: 20130301
  Transmission Date: 20140127
  Serious: Yes (Hospitalization, Other)
  Sender: FDA-Public Use
  Company Number: CHPA2013US003565

PATIENT
  Age: 80 Year
  Sex: Female

DRUGS (3)
  1. BENEFIBER W/ WHEAT DEXTRIN [Suspect]
     Indication: MEDICAL DIET
     Dosage: LITTLE SCOOP (MORE THAN TSP), QD
     Route: 048
  2. BENEFIBER W/ WHEAT DEXTRIN [Suspect]
     Indication: BOWEL MOVEMENT IRREGULARITY
     Dosage: LITTLE SCOOP (MORE THAN TSP), QD
     Route: 048
  3. CRESTOR [Concomitant]
     Dosage: 10 MG, QD

REACTIONS (6)
  - Arrhythmia [Recovering/Resolving]
  - Fibromyalgia [Recovering/Resolving]
  - Hypertension [Not Recovered/Not Resolved]
  - Diabetes mellitus [Not Recovered/Not Resolved]
  - Therapeutic response unexpected [Unknown]
  - Off label use [Unknown]
